FAERS Safety Report 20059481 (Version 1)
Quarter: 2021Q4

REPORT INFORMATION
  Report Type: Spontaneous
  Country: US (occurrence: US)
  Receive Date: 20211111
  Receipt Date: 20211111
  Transmission Date: 20220303
  Serious: Yes (Hospitalization, Other)
  Sender: FDA-Public Use
  Company Number: US-MYLANLABS-2021M1081395

PATIENT
  Age: 60 Year
  Sex: Female

DRUGS (50)
  1. DOXEPIN [Suspect]
     Active Substance: DOXEPIN
     Indication: Depression
     Dosage: 10 MILLIGRAM, FOR 2 NIGHTS
  2. DOXEPIN [Suspect]
     Active Substance: DOXEPIN
     Indication: Memory impairment
  3. JAKAFI [Suspect]
     Active Substance: RUXOLITINIB
     Indication: Polycythaemia vera
     Dosage: 10 MILLIGRAM, BID
     Route: 048
     Dates: start: 2015
  4. JAKAFI [Suspect]
     Active Substance: RUXOLITINIB
     Dosage: 15 MILLIGRAM, BID
     Dates: start: 20160501
  5. JAKAFI [Suspect]
     Active Substance: RUXOLITINIB
     Dosage: 15 MILLIGRAM, BID
  6. JAKAFI [Suspect]
     Active Substance: RUXOLITINIB
     Dosage: 15 MILLIGRAM, BID
  7. JAKAFI [Suspect]
     Active Substance: RUXOLITINIB
     Dosage: 15 MILLIGRAM, BID
  8. JAKAFI [Suspect]
     Active Substance: RUXOLITINIB
     Dosage: 15 MILLIGRAM, BID
  9. JAKAFI [Suspect]
     Active Substance: RUXOLITINIB
     Dosage: 15 MILLIGRAM, BID
  10. JAKAFI [Suspect]
     Active Substance: RUXOLITINIB
     Dosage: 15 MILLIGRAM, BID
     Dates: start: 20200608
  11. JAKAFI [Suspect]
     Active Substance: RUXOLITINIB
     Dosage: 15 MILLIGRAM, BID
  12. JAKAFI [Suspect]
     Active Substance: RUXOLITINIB
     Dosage: 15 MILLIGRAM, BID
     Dates: start: 20170110
  13. SOTALOL [Suspect]
     Active Substance: SOTALOL
     Indication: Product used for unknown indication
     Dosage: UNK
  14. WARFARIN [Suspect]
     Active Substance: WARFARIN
     Indication: Product used for unknown indication
     Dosage: UNK
  15. WARFARIN [Suspect]
     Active Substance: WARFARIN
     Dosage: 5 MILLIGRAM 5 DAYS A WEEK
  16. WARFARIN [Suspect]
     Active Substance: WARFARIN
     Dosage: 7 MILLIGRAM 2 DAYS A WEEK
  17. METFORMIN [Suspect]
     Active Substance: METFORMIN HYDROCHLORIDE
     Indication: Product used for unknown indication
     Dosage: UNK
  18. METFORMIN [Suspect]
     Active Substance: METFORMIN HYDROCHLORIDE
     Dosage: 500 MILLIGRAM, BID
  19. METFORMIN [Suspect]
     Active Substance: METFORMIN HYDROCHLORIDE
     Dosage: 500 MILLIGRAM, QD
  20. LASIX [Suspect]
     Active Substance: FUROSEMIDE
     Indication: Fluid retention
     Dosage: 20 MILLIGRAM
  21. LASIX [Suspect]
     Active Substance: FUROSEMIDE
     Dosage: UNK
  22. OZEMPIC [Suspect]
     Active Substance: SEMAGLUTIDE
     Indication: Product used for unknown indication
     Dosage: ONCE WEEKLY
  23. SYNTHROID [Concomitant]
     Active Substance: LEVOTHYROXINE SODIUM
     Dosage: UNK
  24. CALTRATE PLUS                      /06018001/ [Concomitant]
     Dosage: UNK
  25. VITAMIN D2 [Concomitant]
     Active Substance: ERGOCALCIFEROL
     Dosage: UNK
  26. GLIPIZIDE [Concomitant]
     Active Substance: GLIPIZIDE
     Dosage: UNK
  27. LOTREL                             /01388302/ [Concomitant]
     Dosage: UNK
  28. PRILOSEC                           /00661203/ [Concomitant]
     Dosage: UNK
  29. ALLOPURINOL [Concomitant]
     Active Substance: ALLOPURINOL
     Dosage: UNK
  30. LOPRESSOR [Concomitant]
     Active Substance: METOPROLOL TARTRATE
     Dosage: UNK
  31. LIPITOR [Concomitant]
     Active Substance: ATORVASTATIN CALCIUM
     Dosage: UNK
  32. FENOFIBRATE [Concomitant]
     Active Substance: FENOFIBRATE
     Dosage: UNK
  33. ASPIRIN [Concomitant]
     Active Substance: ASPIRIN
     Dosage: UNK
  34. OMEGA 3 6 9                        /01334101/ [Concomitant]
     Dosage: UNK
  35. METOPROLOL [Concomitant]
     Active Substance: METOPROLOL
     Dosage: UNK
  36. NEURONTIN [Concomitant]
     Active Substance: GABAPENTIN
     Dosage: UNK
  37. JANUVIA [Concomitant]
     Active Substance: SITAGLIPTIN PHOSPHATE
     Dosage: UNK
  38. CIPROFLOXACIN [Concomitant]
     Active Substance: CIPROFLOXACIN
     Dosage: UNK
  39. FLAGYL                             /00012501/ [Concomitant]
     Dosage: UNK
  40. ACYCLOVIR                          /00587301/ [Concomitant]
     Dosage: UNK
  41. MELATONIN [Concomitant]
     Active Substance: MELATONIN
     Dosage: UNK
  42. AMLODIPINE [Concomitant]
     Active Substance: AMLODIPINE BESYLATE
     Dosage: UNK
  43. BENAZEPRIL [Concomitant]
     Active Substance: BENAZEPRIL HYDROCHLORIDE
     Dosage: UNK
  44. CALTRATE                           /00944201/ [Concomitant]
     Dosage: UNK
  45. GLIMEPIRIDE [Concomitant]
     Active Substance: GLIMEPIRIDE
     Dosage: UNK
  46. ESOMEPRAZOL MAGNESIO [Concomitant]
     Dosage: UNK
  47. ALOGLIPTIN [Concomitant]
     Active Substance: ALOGLIPTIN
     Dosage: UNK
  48. EXENATIDE [Concomitant]
     Active Substance: EXENATIDE
     Dosage: UNK
  49. INSULIN GLARGINE [Concomitant]
     Active Substance: INSULIN GLARGINE
     Dosage: UNK
  50. LEVOTHYROXINE [Concomitant]
     Active Substance: LEVOTHYROXINE
     Dosage: UNK

REACTIONS (47)
  - Diverticulitis [Unknown]
  - Chest discomfort [Unknown]
  - Nephrolithiasis [Unknown]
  - Retinopathy [Unknown]
  - Mental impairment [Unknown]
  - Atrial fibrillation [Unknown]
  - Bone marrow failure [Not Recovered/Not Resolved]
  - Chronic kidney disease [Recovering/Resolving]
  - Dyspnoea [Unknown]
  - Platelet count decreased [Not Recovered/Not Resolved]
  - Splenomegaly [Recovered/Resolved]
  - Blood uric acid increased [Unknown]
  - Blood calcium decreased [Recovered/Resolved]
  - Weight decreased [Unknown]
  - Influenza [Recovered/Resolved]
  - Blood glucose abnormal [Unknown]
  - Proteinuria [Unknown]
  - Intervertebral disc protrusion [Unknown]
  - Meniscus injury [Unknown]
  - Synovial cyst [Unknown]
  - Road traffic accident [Unknown]
  - Tooth infection [Unknown]
  - Sinusitis [Unknown]
  - Bone marrow disorder [Unknown]
  - Hepatomegaly [Not Recovered/Not Resolved]
  - Hepatic pain [Unknown]
  - Abdominal discomfort [Unknown]
  - Sneezing [Unknown]
  - Blood iron increased [Unknown]
  - Blood iron decreased [Recovered/Resolved]
  - Gastrointestinal disorder [Not Recovered/Not Resolved]
  - Pruritus [Not Recovered/Not Resolved]
  - Myopia [Unknown]
  - Hypermetropia [Unknown]
  - Full blood count abnormal [Unknown]
  - Feeling abnormal [Unknown]
  - Immune system disorder [Unknown]
  - Depression [Unknown]
  - Memory impairment [Unknown]
  - Anxiety [Unknown]
  - Product availability issue [Unknown]
  - Herpes zoster [Not Recovered/Not Resolved]
  - Blood triglycerides increased [Unknown]
  - Nasopharyngitis [Unknown]
  - Fatigue [Recovering/Resolving]
  - Epistaxis [Unknown]
  - Red blood cell count decreased [Unknown]
